FAERS Safety Report 16911788 (Version 2)
Quarter: 2019Q4

REPORT INFORMATION
  Report Type: Spontaneous
  Country: JP (occurrence: JP)
  Receive Date: 20191014
  Receipt Date: 20191101
  Transmission Date: 20200122
  Serious: No
  Sender: FDA-Public Use
  Company Number: JP-SAKK-2019SA277528AA

PATIENT
  Age: 31 Year
  Sex: Male

DRUGS (3)
  1. CETIRIZINE HYDROCHLORIDE. [Concomitant]
     Active Substance: CETIRIZINE HYDROCHLORIDE
     Indication: PRURITUS
     Dosage: 10 MG, QD
     Route: 065
  2. DUPIXENT [Suspect]
     Active Substance: DUPILUMAB
     Indication: DERMATITIS ATOPIC
     Dosage: 600 MG, 1X
     Route: 058
     Dates: start: 20191007, end: 20191007
  3. MITICURE [Concomitant]
     Active Substance: DERMATOPHAGOIDES FARINAE\DERMATOPHAGOIDES PTERONYSSINUS
     Indication: RHINITIS ALLERGIC
     Dosage: 10000JAU, QD
     Route: 065

REACTIONS (6)
  - Eczema [Recovered/Resolved]
  - Muscle spasticity [Recovered/Resolved]
  - Fall [Recovered/Resolved]
  - Hyperreflexia [Recovered/Resolved]
  - Muscle spasms [Recovered/Resolved]
  - Blood phosphorus decreased [Recovered/Resolved]

NARRATIVE: CASE EVENT DATE: 20191007
